FAERS Safety Report 10272130 (Version 1)
Quarter: 2014Q3

REPORT INFORMATION
  Report Type: Spontaneous
  Country: IE (occurrence: IE)
  Receive Date: 20140702
  Receipt Date: 20140702
  Transmission Date: 20150326
  Serious: Yes (Death)
  Sender: FDA-Public Use
  Company Number: IE-AMGEN-IRLSP2014048247

PATIENT
  Age: 86 Year
  Sex: Male

DRUGS (12)
  1. ANXICALM                           /00017001/ [Concomitant]
  2. AMLODIPINE [Concomitant]
     Active Substance: AMLODIPINE BESYLATE
  3. GALFER [Concomitant]
     Active Substance: IRON
  4. LIPITOR [Concomitant]
     Active Substance: ATORVASTATIN CALCIUM
  5. CARDURA [Concomitant]
     Active Substance: DOXAZOSIN MESYLATE
  6. EMCOLOL [Concomitant]
  7. DIAMICRON [Concomitant]
     Active Substance: GLICLAZIDE
  8. ONE ALPHA [Concomitant]
     Active Substance: ALFACALCIDOL
  9. ZOTROLE [Concomitant]
  10. XATRAL [Concomitant]
     Active Substance: ALFUZOSIN
  11. NUSEALS [Concomitant]
  12. ARANESP [Suspect]
     Active Substance: DARBEPOETIN ALFA
     Indication: PRODUCT USED FOR UNKNOWN INDICATION
     Dosage: 40 MUG, QWK
     Route: 058
     Dates: start: 20090515

REACTIONS (1)
  - Death [Fatal]
